FAERS Safety Report 4563370-X (Version None)
Quarter: 2005Q1

REPORT INFORMATION
  Report Type: 
  Country: None (occurrence: None)
  Receive Date: 20050128
  Receipt Date: 20040309
  Transmission Date: 20050727
  Serious: No
  Sender: FDA-Public Use
  Company Number: US-GLAXOSMITHKLINE-A0501961A

PATIENT
  Age: 49 Year
  Sex: Female

DRUGS (7)
  1. WELLBUTRIN [Suspect]
     Indication: DEPRESSION
     Dosage: 100MG TWICE PER DAY
     Route: 048
     Dates: start: 19920101
  2. PERCOCET [Suspect]
     Route: 065
     Dates: end: 20040305
  3. DECADRON [Suspect]
     Route: 065
     Dates: end: 20040304
  4. KYTRIL [Suspect]
     Route: 065
     Dates: end: 20040304
  5. COMPAZINE [Suspect]
     Route: 065
     Dates: end: 20040304
  6. ATIVAN [Suspect]
  7. BENADRYL [Suspect]

REACTIONS (10)
  - ABDOMINAL PAIN [None]
  - DRUG INTERACTION [None]
  - EAR CONGESTION [None]
  - INSOMNIA [None]
  - NAUSEA [None]
  - PHARYNGOLARYNGEAL PAIN [None]
  - TINNITUS [None]
  - TREMOR [None]
  - VOMITING [None]
  - WHITE BLOOD CELL COUNT DECREASED [None]
